FAERS Safety Report 7138068-4 (Version None)
Quarter: 2010Q4

REPORT INFORMATION
  Report Type: 
  Country: None (occurrence: None)
  Receive Date: 20101103
  Receipt Date: 20100621
  Transmission Date: 20110411
  Serious: Yes (Other)
  Sender: FDA-Public Use
  Company Number: US-WYE-H15796310

PATIENT
  Sex: Female

DRUGS (2)
  1. EFFEXOR XR [Suspect]
  2. TOPAMAX [Concomitant]

REACTIONS (4)
  - CONSTIPATION [None]
  - CONTUSION [None]
  - CONVULSION [None]
  - VISUAL IMPAIRMENT [None]
